FAERS Safety Report 7241142-5 (Version None)
Quarter: 2011Q1

REPORT INFORMATION
  Report Type: 
  Country: None (occurrence: None)
  Receive Date: 20110124
  Receipt Date: 20110119
  Transmission Date: 20110831
  Serious: Yes (Death)
  Sender: FDA-Public Use
  Company Number: FR-ROCHE-706747

PATIENT
  Sex: Female
  Weight: 35 kg

DRUGS (13)
  1. MORPHINE SULFATE [Concomitant]
     Dates: start: 20070901
  2. CISPLATIN [Suspect]
     Indication: NON-SMALL CELL LUNG CANCER
     Dosage: LAST DOSE PRIOR TO SAE: 25 MAY 2010
     Route: 042
     Dates: start: 20100525, end: 20100529
  3. IMOVANE [Concomitant]
     Dosage: START DATE: 2010
  4. BEVACIZUMAB [Suspect]
     Indication: NON-SMALL CELL LUNG CANCER
     Dosage: LAST DOSE PRIOR TO SAE: 25 MAY 2010
     Route: 042
     Dates: start: 20100525, end: 20100529
  5. MORPHINE SULFATE [Concomitant]
     Dosage: START DATE: 2010
  6. MEDROL [Concomitant]
     Dates: start: 20100522, end: 20100525
  7. SPECIAFOLDINE [Concomitant]
     Dates: start: 20100518
  8. ACTISKENAN [Concomitant]
     Dosage: START DATE: 2010
  9. LAROXYL [Concomitant]
     Dosage: START DATE: 2010
  10. NEXIUM [Concomitant]
     Dosage: START DATE: 2010
  11. ATARAX [Concomitant]
     Dosage: START DATE: 50 MG
  12. PEMETREXED [Suspect]
     Indication: NON-SMALL CELL LUNG CANCER
     Dosage: LAST DOSE PRIOR TO SAE: 25 MAY 2010
     Route: 042
     Dates: start: 20100525, end: 20100529
  13. LYRICA [Concomitant]
     Dates: start: 20100525

REACTIONS (2)
  - HAEMOPTYSIS [None]
  - HAEMORRHAGE [None]
